FAERS Safety Report 21822069 (Version 1)
Quarter: 2023Q1

REPORT INFORMATION
  Report Type: Spontaneous
  Country: CA (occurrence: CA)
  Receive Date: 20230105
  Receipt Date: 20230105
  Transmission Date: 20230418
  Serious: Yes (Hospitalization)
  Sender: FDA-Public Use
  Company Number: None

PATIENT
  Age: 63 Year
  Sex: Male

DRUGS (10)
  1. METHOTREXATE [Suspect]
     Active Substance: METHOTREXATE
     Indication: Rheumatoid arthritis
     Dosage: 1 EVERY 1 WEEKS, USP
     Route: 048
  2. AZATHIOPRINE [Suspect]
     Active Substance: AZATHIOPRINE
     Indication: Rheumatoid arthritis
     Dosage: 1 EVERY 1 DAYS
     Route: 048
  3. ACETAMINOPHEN [Concomitant]
     Active Substance: ACETAMINOPHEN
  4. AMLODIPINE [Concomitant]
     Active Substance: AMLODIPINE BESYLATE
     Route: 065
  5. ASPIRIN [Concomitant]
     Active Substance: ASPIRIN
     Route: 065
  6. Diclogel [Concomitant]
  7. FERROUS GLUCONATE [Concomitant]
     Active Substance: FERROUS GLUCONATE
  8. FOLIC ACID [Concomitant]
     Active Substance: FOLIC ACID
  9. GABAPENTIN [Concomitant]
     Active Substance: GABAPENTIN
  10. VITAMIN D [Concomitant]
     Active Substance: VITAMIN D NOS

REACTIONS (2)
  - Febrile neutropenia [Not Recovered/Not Resolved]
  - Transfusion [Not Recovered/Not Resolved]
